FAERS Safety Report 13463852 (Version 1)
Quarter: 2017Q2

REPORT INFORMATION
  Report Type: Spontaneous
  Country: US (occurrence: US)
  Receive Date: 20170420
  Receipt Date: 20170420
  Transmission Date: 20170830
  Serious: Yes (Other)
  Sender: FDA-Public Use
  Company Number: US-ROCHE-709664

PATIENT
  Sex: Female
  Weight: 68 kg

DRUGS (2)
  1. OMEPRAZOLE. [Concomitant]
     Active Substance: OMEPRAZOLE
     Dosage: FREQUENCY: DAILY
     Route: 065
  2. ACCUTANE [Suspect]
     Active Substance: ISOTRETINOIN
     Indication: ACNE CYSTIC
     Dosage: FREQUENCY: DAILY
     Route: 048
     Dates: start: 1991, end: 1993

REACTIONS (8)
  - Malnutrition [Unknown]
  - Blood triglycerides increased [Unknown]
  - Dry eye [Unknown]
  - Hyperaesthesia [Unknown]
  - Colitis ulcerative [Recovering/Resolving]
  - Depression [Unknown]
  - Gastrooesophageal reflux disease [Unknown]
  - Vomiting [Unknown]

NARRATIVE: CASE EVENT DATE: 1993
